FAERS Safety Report 5087423-5 (Version None)
Quarter: 2006Q3

REPORT INFORMATION
  Report Type: 
  Country: None (occurrence: None)
  Receive Date: 20060822
  Receipt Date: 20060822
  Transmission Date: 20061208
  Serious: Yes (Other)
  Sender: FDA-Public Use
  Company Number: None

PATIENT
  Sex: Male

DRUGS (2)
  1. DARVOCET [Suspect]
     Indication: MULTIPLE SCLEROSIS
     Dosage: ONE Q4-6 PRN PO
     Route: 048
  2. DARVOCET [Suspect]
     Indication: PAIN IN EXTREMITY
     Dosage: ONE Q4-6 PRN PO
     Route: 048

REACTIONS (1)
  - THERAPY NON-RESPONDER [None]
